FAERS Safety Report 16094048 (Version 1)
Quarter: 2019Q1

REPORT INFORMATION
  Report Type: Spontaneous
  Country: US (occurrence: US)
  Receive Date: 20190320
  Receipt Date: 20190320
  Transmission Date: 20190418
  Serious: No
  Sender: FDA-Public Use
  Company Number: US-BAYER-2019-048773

PATIENT
  Age: 86 Year
  Sex: Female
  Weight: 107 kg

DRUGS (7)
  1. ENABLEX [Concomitant]
     Active Substance: DARIFENACIN HYDROBROMIDE
  2. COREG [Concomitant]
     Active Substance: CARVEDILOL
  3. FUROSEMIDE. [Concomitant]
     Active Substance: FUROSEMIDE
  4. SODIUM [Concomitant]
     Active Substance: SODIUM
  5. STOOL SOFTENER (DOCUSATE) [Concomitant]
     Active Substance: DOCUSATE
  6. WARFARIN [Concomitant]
     Active Substance: WARFARIN
  7. MIRALAX [Suspect]
     Active Substance: POLYETHYLENE GLYCOL 3350
     Indication: GASTROINTESTINAL DISORDER
     Dosage: 0.5 DF, TIW
     Route: 048
     Dates: start: 201902

REACTIONS (2)
  - Underdose [Unknown]
  - Faeces hard [Recovered/Resolved]

NARRATIVE: CASE EVENT DATE: 201902
